FAERS Safety Report 25111528 (Version 3)
Quarter: 2025Q2

REPORT INFORMATION
  Report Type: Spontaneous
  Country: US (occurrence: US)
  Receive Date: 20250324
  Receipt Date: 20250604
  Transmission Date: 20250716
  Serious: Yes (Hospitalization, Other)
  Sender: REGENERON
  Company Number: US-REGENERON PHARMACEUTICALS, INC.-2025-051124

PATIENT
  Sex: Male

DRUGS (1)
  1. PRALUENT [Suspect]
     Active Substance: ALIROCUMAB
     Indication: Blood cholesterol increased
     Dosage: 150 MG, Q2W (EVERY OTHER WEEK); STRENGTH:150 MG/ML
     Route: 058
     Dates: start: 202412

REACTIONS (9)
  - Nephrolithiasis [Recovered/Resolved]
  - Aneurysm [Unknown]
  - Thrombosis [Unknown]
  - Stent placement [Unknown]
  - Peripheral artery occlusion [Unknown]
  - Prostatomegaly [Unknown]
  - Gait disturbance [Unknown]
  - Myalgia [Recovered/Resolved]
  - Myalgia [Recovered/Resolved]

NARRATIVE: CASE EVENT DATE: 20241201
